FAERS Safety Report 23571856 (Version 2)
Quarter: 2024Q1

REPORT INFORMATION
  Report Type: Spontaneous
  Country: US (occurrence: US)
  Receive Date: 20240227
  Receipt Date: 20240312
  Transmission Date: 20240409
  Serious: No
  Sender: FDA-Public Use
  Company Number: US-Calliditas-2024CAL00329

PATIENT
  Age: 63 Year
  Sex: Male
  Weight: 92.99 kg

DRUGS (3)
  1. TARPEYO [Suspect]
     Active Substance: BUDESONIDE
     Indication: IgA nephropathy
     Dosage: 16 MG (4 MG CAPSULES) ONCE DAILY
     Route: 048
     Dates: start: 20230706
  2. FILSPARI [Suspect]
     Active Substance: SPARSENTAN
  3. FILSPARI [Suspect]
     Active Substance: SPARSENTAN

REACTIONS (4)
  - Hypotension [Unknown]
  - Product dose omission issue [Unknown]
  - Nervousness [Unknown]
  - Muscle spasms [Unknown]
